FAERS Safety Report 4467730-7 (Version None)
Quarter: 2004Q4

REPORT INFORMATION
  Report Type: 
  Country: None (occurrence: None)
  Receive Date: 20041001
  Receipt Date: 20040921
  Transmission Date: 20050328
  Serious: No
  Sender: FDA-Public Use
  Company Number: 04H-062-0274882-00

PATIENT
  Sex: 0

DRUGS (2)
  1. THIOPENTAL SODIUM [Suspect]
     Indication: SEDATION
     Dosage: SEE IMAGE
     Route: 042
  2. MANNITOL [Concomitant]

REACTIONS (1)
  - PNEUMONIA [None]
